FAERS Safety Report 23545484 (Version 1)
Quarter: 2024Q1

REPORT INFORMATION
  Report Type: Spontaneous
  Country: US (occurrence: US)
  Receive Date: 20240220
  Receipt Date: 20240220
  Transmission Date: 20240410
  Serious: Yes (Hospitalization)
  Sender: FDA-Public Use
  Company Number: US-PFIZER INC-202400043074

PATIENT
  Age: 75 Year
  Sex: Male
  Weight: 51.5 kg

DRUGS (5)
  1. VYNDAMAX [Suspect]
     Active Substance: TAFAMIDIS
     Indication: Cardiac amyloidosis
     Dosage: 61 MG
  2. ASPIRIN [Concomitant]
     Active Substance: ASPIRIN
     Indication: Hypertension
     Dosage: 81 MG
     Dates: start: 202011
  3. ROSUVASTATIN [Concomitant]
     Active Substance: ROSUVASTATIN
     Indication: Hypertension
     Dosage: 20 MG
     Dates: start: 202011
  4. FUROSEMIDE [Concomitant]
     Active Substance: FUROSEMIDE
     Indication: Hypertension
     Dosage: 20 MG
     Dates: start: 202011
  5. BRILINTA [Concomitant]
     Active Substance: TICAGRELOR
     Indication: Hypertension
     Dosage: 90 MG

REACTIONS (1)
  - Myocardial infarction [Unknown]
